FAERS Safety Report 8297747-6 (Version None)
Quarter: 2012Q1

REPORT INFORMATION
  Report Type: 
  Country: None (occurrence: None)
  Receive Date: 20120323
  Receipt Date: 20101021
  Transmission Date: 20120608
  Serious: Yes (Hospitalization)
  Sender: FDA-Public Use
  Company Number: PHHY2010US68775

PATIENT
  Age: 17 Year
  Sex: Female

DRUGS (8)
  1. AUGMENTIN (AMOXICILLIN SODIUM,  CLAVULANAATE POTASSIUM) [Concomitant]
  2. PULMOZYME [Concomitant]
  3. CREON (AMYLASE, LIPASE, PANCREATIN, PROTEASE) [Concomitant]
  4. TOBI [Suspect]
     Indication: CYSTIC FIBROSIS
     Dosage: 300 MG, BID, INHALATION
     Route: 055
  5. ANTIBIOTICS (NO INGREDIENTS/SUBSTANCES) [Concomitant]
  6. ADEK (COLECALCIFEROL, MENADIOL DIACETATE, RETINOL PALMITATE, TOCOPHERY [Concomitant]
  7. ALBUTEROL [Concomitant]
  8. CEFTIN [Concomitant]

REACTIONS (2)
  - PULMONARY FUNCTION TEST DECREASED [None]
  - COUGH [None]
